FAERS Safety Report 5602256-6 (Version None)
Quarter: 2008Q1

REPORT INFORMATION
  Report Type: 
  Country: None (occurrence: None)
  Receive Date: 20080122
  Receipt Date: 20080114
  Transmission Date: 20080703
  Serious: Yes (Hospitalization)
  Sender: FDA-Public Use
  Company Number: 163-20785-07111321

PATIENT
  Age: 48 Year
  Sex: Female

DRUGS (8)
  1. THALOMID [Suspect]
     Indication: MULTIPLE MYELOMA
     Dosage: 100 MG, ORAL; 50 MG, 1 IN 1 D, ORAL
     Route: 048
     Dates: start: 20070318, end: 20070404
  2. THALOMID [Suspect]
     Indication: MULTIPLE MYELOMA
     Dosage: 100 MG, ORAL; 50 MG, 1 IN 1 D, ORAL
     Route: 048
     Dates: start: 20070406, end: 20071010
  3. VITAMIN D [Concomitant]
  4. NEXIUM [Concomitant]
  5. OXYCODONE HCL [Concomitant]
  6. VELCADE [Concomitant]
  7. ZOMETA [Concomitant]
  8. DEXAMETHASONE TAB [Concomitant]

REACTIONS (3)
  - HAEMOGLOBIN DECREASED [None]
  - NEUROPATHY PERIPHERAL [None]
  - STERNAL FRACTURE [None]
